FAERS Safety Report 10872189 (Version 1)
Quarter: 2015Q1

REPORT INFORMATION
  Report Type: Spontaneous
  Country: US (occurrence: None)
  Receive Date: 20150223
  Receipt Date: 20150223
  Transmission Date: 20150721
  Serious: Yes (Disabling)
  Sender: FDA-Public Use
  Company Number: None

PATIENT
  Age: 60 Year
  Sex: Female

DRUGS (1)
  1. ONDANSETRON. [Suspect]
     Active Substance: ONDANSETRON
     Indication: NAUSEA
     Dosage: ONE TABLET DAILY AS NEEDED, ONCE DAILY, TAKEN BY MOUTH
     Route: 048
     Dates: start: 20150213, end: 20150214

REACTIONS (5)
  - Malaise [None]
  - Nausea [None]
  - Vomiting [None]
  - Product label issue [None]
  - Accidental overdose [None]

NARRATIVE: CASE EVENT DATE: 20150214
